FAERS Safety Report 11029724 (Version 1)
Quarter: 2015Q2

REPORT INFORMATION
  Report Type: Spontaneous
  Country: GB (occurrence: GB)
  Receive Date: 20150415
  Receipt Date: 20150415
  Transmission Date: 20150821
  Serious: Yes (Other)
  Sender: FDA-Public Use
  Company Number: GB-JNJFOC-20140714084

PATIENT
  Age: 8 Week
  Sex: Female

DRUGS (2)
  1. CALPOL [Suspect]
     Active Substance: ACETAMINOPHEN
     Indication: PYREXIA
     Route: 048
     Dates: start: 20140717, end: 20140717
  2. CALPOL [Suspect]
     Active Substance: ACETAMINOPHEN
     Indication: IMMUNISATION
     Route: 048
     Dates: start: 20140717, end: 20140717

REACTIONS (6)
  - Eye disorder [Recovered/Resolved]
  - Skin discolouration [Recovered/Resolved]
  - Respiratory rate decreased [Recovered/Resolved]
  - Product quality issue [Unknown]
  - Choking [Recovered/Resolved]
  - Rash generalised [Recovering/Resolving]

NARRATIVE: CASE EVENT DATE: 20140717
